FAERS Safety Report 16866738 (Version 1)
Quarter: 2019Q3

REPORT INFORMATION
  Report Type: Spontaneous
  Country: US (occurrence: US)
  Receive Date: 20190805
  Receipt Date: 20190805
  Transmission Date: 20191005
  Serious: Yes (Life-Threatening, Hospitalization)
  Sender: FDA-Public Use
  Company Number: None

PATIENT
  Age: 81 Year
  Sex: Male
  Weight: 146 kg

DRUGS (1)
  1. APIXABAN [Suspect]
     Active Substance: APIXABAN
     Indication: ATRIAL FIBRILLATION
     Route: 048
     Dates: start: 20160609, end: 20190606

REACTIONS (11)
  - Acute kidney injury [None]
  - Mental status changes [None]
  - Metabolic encephalopathy [None]
  - Metabolic acidosis [None]
  - Gastric haemorrhage [None]
  - Shock haemorrhagic [None]
  - Gastrointestinal haemorrhage [None]
  - Haemoglobin decreased [None]
  - Rhabdomyolysis [None]
  - Hypotension [None]
  - Shock [None]

NARRATIVE: CASE EVENT DATE: 20190606
